FAERS Safety Report 9274343 (Version 1)
Quarter: 2013Q2

REPORT INFORMATION
  Report Type: Spontaneous
  Country: US (occurrence: US)
  Receive Date: 20130506
  Receipt Date: 20130506
  Transmission Date: 20140414
  Serious: Yes (Other)
  Sender: FDA-Public Use
  Company Number: US-TEVA-403037USA

PATIENT
  Sex: 0

DRUGS (6)
  1. LOVASTATIN [Suspect]
     Dates: start: 201004
  2. XANAX [Concomitant]
  3. FLAGYL [Concomitant]
  4. DIFLUCAN [Concomitant]
  5. CEFTIN [Concomitant]
  6. CIPROFLOXACIN [Concomitant]

REACTIONS (2)
  - Intestinal ulcer [Unknown]
  - Gastrointestinal inflammation [Unknown]
